FAERS Safety Report 6841896-3 (Version None)
Quarter: 2010Q3

REPORT INFORMATION
  Report Type: 
  Country: None (occurrence: None)
  Receive Date: 20100714
  Receipt Date: 20070716
  Transmission Date: 20110219
  Serious: No
  Sender: FDA-Public Use
  Company Number: US-PFIZER INC-2007059270

PATIENT
  Sex: Female
  Weight: 74.1 kg

DRUGS (5)
  1. CHANTIX [Suspect]
     Indication: SMOKING CESSATION THERAPY
     Dates: start: 20070629
  2. DRUG, UNSPECIFIED [Concomitant]
     Dates: start: 20030101
  3. ATENOLOL [Concomitant]
     Dates: start: 20030101
  4. VALIUM [Concomitant]
     Dates: start: 20030101
  5. DRUG, UNSPECIFIED [Concomitant]
     Dates: start: 20030101

REACTIONS (1)
  - NAUSEA [None]
